FAERS Safety Report 5413481-1 (Version None)
Quarter: 2007Q3

REPORT INFORMATION
  Report Type: 
  Country: None (occurrence: None)
  Receive Date: 20070814
  Receipt Date: 20070809
  Transmission Date: 20080115
  Serious: Yes (Death, Hospitalization)
  Sender: FDA-Public Use
  Company Number: US-BRISTOL-MYERS SQUIBB COMPANY-13843180

PATIENT
  Age: 75 Year
  Sex: Female
  Weight: 52 kg

DRUGS (9)
  1. ERBITUX [Suspect]
     Indication: LUNG ADENOCARCINOMA
     Dosage: 400MG/M2 OVER 2 HRS ON WK 1, CYCLE 1 250MG/M2 IV OVER 1 HR WEEKLY STARTING WK2.
     Route: 042
     Dates: start: 20070502, end: 20070705
  2. TAXOL [Suspect]
     Indication: LUNG ADENOCARCINOMA
     Dosage: 200MG/M2 IV OVER 3 HOURS Q 21 DAYS STARTING WK1
     Route: 042
     Dates: start: 20070613, end: 20070613
  3. CARBOPLATIN [Suspect]
     Indication: LUNG ADENOCARCINOMA
     Dosage: AUC 6 IV OVER 30 MIN Q 21 DAYS STARTING WK 1.
     Route: 042
     Dates: start: 20070613, end: 20070613
  4. RHUMAB-VEGF [Suspect]
     Indication: LUNG ADENOCARCINOMA
     Dates: end: 20070523
  5. ALBUTEROL [Concomitant]
  6. ALLEGRA [Concomitant]
  7. POTASSIUM CHLORIDE [Concomitant]
  8. SINGULAIR [Concomitant]
  9. SPIRIVA [Concomitant]

REACTIONS (6)
  - HYPOALBUMINAEMIA [None]
  - HYPOMAGNESAEMIA [None]
  - HYPONATRAEMIA [None]
  - MYOCARDIAL ISCHAEMIA [None]
  - PNEUMONIA [None]
  - PULMONARY HAEMORRHAGE [None]
